FAERS Safety Report 11680260 (Version 3)
Quarter: 2015Q4

REPORT INFORMATION
  Report Type: Spontaneous
  Country: US (occurrence: US)
  Receive Date: 20151027
  Receipt Date: 20151110
  Transmission Date: 20160304
  Serious: No
  Sender: FDA-Public Use
  Company Number: US-ELI_LILLY_AND_COMPANY-US201005003655

PATIENT
  Age: 87 Year
  Sex: Male

DRUGS (14)
  1. FORTEO [Suspect]
     Active Substance: TERIPARATIDE
     Indication: OSTEOPOROSIS
     Dosage: 20 UG, DAILY (1/D)
     Route: 065
     Dates: start: 20100315
  2. FORTEO [Suspect]
     Active Substance: TERIPARATIDE
     Dosage: 20 UG, DAILY (1/D)
     Route: 065
  3. FORTEO [Suspect]
     Active Substance: TERIPARATIDE
     Dosage: 20 UG, DAILY (1/D)
     Route: 065
  4. FORTEO [Suspect]
     Active Substance: TERIPARATIDE
     Dosage: 20 UG, QD
     Route: 065
  5. FORTEO [Suspect]
     Active Substance: TERIPARATIDE
     Dosage: 20 UG, QD
  6. FORTEO [Suspect]
     Active Substance: TERIPARATIDE
     Dosage: 20 UG, DAILY (1/D)
     Route: 065
  7. FORTEO [Suspect]
     Active Substance: TERIPARATIDE
     Dosage: 20 UG, DAILY (1/D)
     Route: 065
  8. FORTEO [Suspect]
     Active Substance: TERIPARATIDE
     Dosage: 20 UG, DAILY (1/D)
     Route: 065
  9. FORTEO [Suspect]
     Active Substance: TERIPARATIDE
     Dosage: 20 UG, DAILY (1/D)
     Route: 065
  10. FORTEO [Suspect]
     Active Substance: TERIPARATIDE
     Dosage: 20 UG, DAILY (1/D)
     Route: 065
  11. PLAVIX [Concomitant]
     Active Substance: CLOPIDOGREL BISULFATE
  12. ALCOHOL. [Concomitant]
     Active Substance: ALCOHOL
  13. FORTEO [Suspect]
     Active Substance: TERIPARATIDE
     Dosage: 20 UG, DAILY (1/D)
     Route: 065
  14. ASPIRIN. [Concomitant]
     Active Substance: ASPIRIN

REACTIONS (28)
  - Accident [Unknown]
  - Arterial disorder [Unknown]
  - Eye disorder [Recovered/Resolved]
  - Peripheral swelling [Unknown]
  - Injection site pain [Unknown]
  - Wrong technique in product usage process [Not Recovered/Not Resolved]
  - Eyelid infection [Recovered/Resolved]
  - Amnesia [Unknown]
  - Injection site nodule [Not Recovered/Not Resolved]
  - Contusion [Not Recovered/Not Resolved]
  - Lens disorder [Recovered/Resolved]
  - Fall [Unknown]
  - Peripheral vascular disorder [Unknown]
  - Impaired healing [Unknown]
  - Arthralgia [Recovering/Resolving]
  - Diplopia [Recovered/Resolved]
  - Injection site pain [Not Recovered/Not Resolved]
  - Eye haemorrhage [Recovered/Resolved]
  - Eye irritation [Recovered/Resolved]
  - Drug intolerance [Unknown]
  - Injection site mass [Unknown]
  - Muscle spasms [Recovering/Resolving]
  - Drug dose omission [Unknown]
  - Eye pain [Recovered/Resolved]
  - Fall [Unknown]
  - Pain in extremity [Not Recovered/Not Resolved]
  - Injection site scab [Not Recovered/Not Resolved]
  - Sleep disorder due to a general medical condition [Unknown]

NARRATIVE: CASE EVENT DATE: 201003
